FAERS Safety Report 5517840-8 (Version None)
Quarter: 2007Q4

REPORT INFORMATION
  Report Type: 
  Country: None (occurrence: None)
  Receive Date: 20071113
  Receipt Date: 20071029
  Transmission Date: 20080405
  Serious: Yes (Other)
  Sender: FDA-Public Use
  Company Number: US-CVT-070177

PATIENT
  Age: 79 Year
  Sex: Male

DRUGS (10)
  1. RANEXA                    (RANOLAZINE)             FILM-COATED TABLET [Suspect]
     Indication: ANGINA PECTORIS
     Dosage: 500 MG, BID; ORAL
     Route: 048
     Dates: start: 20071017, end: 20071026
  2. PACERONE [Concomitant]
  3. ASPIRIN [Concomitant]
  4. ISOSORBIDE               (ISOSORBIDE) [Concomitant]
  5. TOPROL-XL [Concomitant]
  6. CELEBREX [Concomitant]
  7. FLOMAX [Concomitant]
  8. DIOVAN HCT [Concomitant]
  9. PLAVIX [Concomitant]
  10. PRAVASTATIN [Concomitant]

REACTIONS (8)
  - ABDOMINAL PAIN [None]
  - CARDIAC FIBRILLATION [None]
  - CONDITION AGGRAVATED [None]
  - HEART RATE IRREGULAR [None]
  - HYPERTENSION [None]
  - INCORRECT DOSE ADMINISTERED [None]
  - MALAISE [None]
  - NAUSEA [None]
